FAERS Safety Report 8416303-X (Version None)
Quarter: 2012Q2

REPORT INFORMATION
  Report Type: 
  Country: None (occurrence: None)
  Receive Date: 20120530
  Receipt Date: 20120514
  Transmission Date: 20120825
  Serious: Yes (Hospitalization)
  Sender: FDA-Public Use
  Company Number: DSA_55227_2012

PATIENT
  Sex: Male

DRUGS (7)
  1. SAXAGLIPTIN (SAXAGLIPTIN) [Suspect]
     Indication: TYPE 2 DIABETES MELLITUS
     Dosage: (DF)
     Dates: start: 20100923, end: 20110907
  2. METFORMIN HCL [Suspect]
     Indication: TYPE 2 DIABETES MELLITUS
     Dosage: (2 G)
     Dates: end: 20110816
  3. CILOSTAZOL [Concomitant]
  4. ASPIRIN [Concomitant]
  5. INSULIN [Suspect]
     Indication: TYPE 2 DIABETES MELLITUS
     Dosage: (20 IU/U)
     Dates: start: 20110816
  6. PLACEBO [Suspect]
     Indication: TYPE 2 DIABETES MELLITUS
     Dosage: (DF)
     Dates: start: 20100923, end: 20110907
  7. ENALAPRIL MALEATE [Suspect]
     Indication: PRODUCT USED FOR UNKNOWN INDICATION
     Dosage: (DF)
     Dates: end: 20120207

REACTIONS (2)
  - HYDRONEPHROSIS [None]
  - RENAL FAILURE ACUTE [None]
